FAERS Safety Report 4284582-9 (Version None)
Quarter: 2004Q1

REPORT INFORMATION
  Report Type: 
  Country: None (occurrence: None)
  Receive Date: 20040129
  Receipt Date: 20040119
  Transmission Date: 20041129
  Serious: Yes (Hospitalization)
  Sender: FDA-Public Use
  Company Number: 2004003970

PATIENT
  Age: 69 Year
  Sex: Female

DRUGS (5)
  1. ATORVASTATIN CALCIUM [Suspect]
     Indication: DYSLIPIDAEMIA
     Dosage: 80 MG (EVERY OTHER DAY), ORAL
     Route: 048
     Dates: start: 20020901
  2. ISOSORBIDE MONONITRATE [Concomitant]
  3. PROPRANOLOL [Concomitant]
  4. CAPTOPRIL [Concomitant]
  5. EZETIMIBE (EZETIMBE) [Concomitant]

REACTIONS (2)
  - CARDIOVASCULAR DISORDER [None]
  - VENOUS OCCLUSION [None]
